FAERS Safety Report 6918500-9 (Version None)
Quarter: 2010Q3

REPORT INFORMATION
  Report Type: 
  Country: None (occurrence: None)
  Receive Date: 20100811
  Receipt Date: 20100809
  Transmission Date: 20110219
  Serious: Yes (Other)
  Sender: FDA-Public Use
  Company Number: US-ASTRAZENECA-2008UW01192

PATIENT
  Age: 56 Year
  Sex: Female
  Weight: 84.8 kg

DRUGS (14)
  1. SEROQUEL [Suspect]
     Indication: SCHIZOPHRENIA
     Dosage: 200MG-400MG
     Route: 048
     Dates: start: 19990101, end: 20070801
  2. SEROQUEL [Suspect]
     Indication: INSOMNIA
     Dosage: 200MG-400MG
     Route: 048
     Dates: start: 19990101, end: 20070801
  3. SEROQUEL [Suspect]
     Indication: ANXIETY
     Dosage: 200MG-400MG
     Route: 048
     Dates: start: 19990101, end: 20070801
  4. SEROQUEL [Suspect]
     Dosage: 200MG-400MG
     Route: 048
     Dates: start: 20020729
  5. SEROQUEL [Suspect]
     Dosage: 200MG-400MG
     Route: 048
     Dates: start: 20020729
  6. SEROQUEL [Suspect]
     Dosage: 200MG-400MG
     Route: 048
     Dates: start: 20020729
  7. RISPERDAL [Concomitant]
     Indication: ANXIETY
     Dates: start: 20020501
  8. RISPERDAL [Concomitant]
     Indication: SCHIZOPHRENIA
     Dates: start: 20020501
  9. RISPERDAL [Concomitant]
     Indication: INSOMNIA
     Dates: start: 20020501
  10. ZYPREXA [Concomitant]
     Indication: ANXIETY
     Dates: start: 19980801
  11. ZYPREXA [Concomitant]
     Indication: SCHIZOPHRENIA
     Dates: start: 19980801
  12. ZYPREXA [Concomitant]
     Indication: INSOMNIA
     Dates: start: 19980801
  13. DEPAKOTE [Concomitant]
  14. HYDROXYCUT [Concomitant]
     Indication: WEIGHT CONTROL

REACTIONS (9)
  - ADVERSE DRUG REACTION [None]
  - APPENDIX DISORDER [None]
  - BLOOD CHOLESTEROL INCREASED [None]
  - DIABETIC COMPLICATION [None]
  - HYPERLIPIDAEMIA [None]
  - OBESITY [None]
  - ROAD TRAFFIC ACCIDENT [None]
  - THROAT CANCER [None]
  - TYPE 2 DIABETES MELLITUS [None]
